FAERS Safety Report 7202748-2 (Version None)
Quarter: 2010Q4

REPORT INFORMATION
  Report Type: 
  Country: None (occurrence: None)
  Receive Date: 20101229
  Receipt Date: 20101217
  Transmission Date: 20110411
  Serious: Yes (Hospitalization)
  Sender: FDA-Public Use
  Company Number: CA-ELI_LILLY_AND_COMPANY-CA201010006857

PATIENT

DRUGS (2)
  1. STRATTERA [Suspect]
     Dosage: 40 MG, UNK
  2. RISPERIDONE [Concomitant]
     Dosage: 1 MG, EACH EVENING

REACTIONS (3)
  - DELIRIUM [None]
  - LETHARGY [None]
  - PSYCHOTIC DISORDER [None]
